FAERS Safety Report 7068208-7 (Version None)
Quarter: 2010Q4

REPORT INFORMATION
  Report Type: 
  Country: None (occurrence: None)
  Receive Date: 20101028
  Receipt Date: 20101025
  Transmission Date: 20110411
  Serious: Yes (Hospitalization)
  Sender: FDA-Public Use
  Company Number: FR-ROCHE-730462

PATIENT
  Sex: Male

DRUGS (10)
  1. RIVOTRIL [Suspect]
     Indication: ANXIETY
     Route: 048
     Dates: start: 20091101
  2. SOLIAN [Suspect]
     Dosage: 100 MG/ML
     Route: 048
     Dates: end: 20100701
  3. LOXAPAC [Suspect]
     Route: 048
  4. CLOPIXOL [Suspect]
     Route: 048
  5. ATARAX [Suspect]
     Indication: ANXIETY
     Dosage: DIVISIBLE COATED TABLETS
     Route: 048
     Dates: start: 20081201
  6. DEPAKOTE [Suspect]
     Dosage: GASTRO-RESISTANT TABLETS
     Route: 048
     Dates: start: 20081201
  7. NOCTAMIDE [Suspect]
     Indication: INSOMNIA
     Dosage: DIVISIBLE TABLETS
     Route: 048
     Dates: start: 20081201
  8. LEPTICUR [Suspect]
     Indication: EXTRAPYRAMIDAL DISORDER
     Route: 048
     Dates: start: 20091101
  9. FORLAX [Concomitant]
  10. LEVOTHYROXINE SODIUM [Concomitant]

REACTIONS (1)
  - HYPOGLYCAEMIA [None]
